FAERS Safety Report 16818673 (Version 9)
Quarter: 2020Q4

REPORT INFORMATION
  Report Type: Spontaneous
  Country: BR (occurrence: BR)
  Receive Date: 20190917
  Receipt Date: 20201209
  Transmission Date: 20210113
  Serious: Yes (Other)
  Sender: FDA-Public Use
  Company Number: BR-GLAXOSMITHKLINE-BR2019GSK003150

PATIENT
  Age: 37 Year
  Sex: Female
  Weight: 91 kg

DRUGS (3)
  1. BENLYSTA [Suspect]
     Active Substance: BELIMUMAB
     Indication: SYSTEMIC LUPUS ERYTHEMATOSUS
     Dosage: 800 MG, UNK
     Dates: start: 20181023
  2. BENLYSTA [Suspect]
     Active Substance: BELIMUMAB
     Dosage: 800 MG, UNK
  3. BENLYSTA [Suspect]
     Active Substance: BELIMUMAB
     Dosage: 400 MG, UNK

REACTIONS (25)
  - Weight fluctuation [Not Recovered/Not Resolved]
  - Pyrexia [Recovered/Resolved]
  - Anaemia [Unknown]
  - Therapeutic product effect incomplete [Unknown]
  - Ill-defined disorder [Unknown]
  - Erythema [Unknown]
  - Cough [Recovered/Resolved]
  - Renal disorder [Unknown]
  - Headache [Unknown]
  - Underdose [Not Recovered/Not Resolved]
  - Depression [Unknown]
  - Lung disorder [Recovered/Resolved]
  - Nephrotic syndrome [Unknown]
  - Influenza [Recovered/Resolved]
  - Slow speech [Unknown]
  - Product dose omission issue [Not Recovered/Not Resolved]
  - Blood pressure abnormal [Recovered/Resolved]
  - Crying [Unknown]
  - Treatment noncompliance [Unknown]
  - Fatigue [Recovered/Resolved]
  - Retching [Unknown]
  - Inappropriate schedule of product administration [Unknown]
  - Malaise [Unknown]
  - Chills [Recovered/Resolved]
  - Hypersensitivity [Unknown]

NARRATIVE: CASE EVENT DATE: 20200731
